FAERS Safety Report 22152225 (Version 2)
Quarter: 2023Q2

REPORT INFORMATION
  Report Type: Spontaneous
  Country: PT (occurrence: PT)
  Receive Date: 20230329
  Receipt Date: 20230412
  Transmission Date: 20230721
  Serious: No
  Sender: FDA-Public Use
  Company Number: PT-Gedeon Richter Plc.-2023_GR_002489

PATIENT
  Age: 44 Year
  Sex: Female

DRUGS (1)
  1. ESTRADIOL\NORETHINDRONE ACETATE\RELUGOLIX [Suspect]
     Active Substance: ESTRADIOL\NORETHINDRONE ACETATE\RELUGOLIX
     Indication: Endometriosis
     Dosage: UNK
     Route: 065

REACTIONS (2)
  - Product supply issue [Unknown]
  - Product use issue [Unknown]
